FAERS Safety Report 6780744-7 (Version None)
Quarter: 2010Q2

REPORT INFORMATION
  Report Type: 
  Country: None (occurrence: None)
  Receive Date: 20100621
  Receipt Date: 20100618
  Transmission Date: 20101027
  Serious: Yes (Life-Threatening)
  Sender: FDA-Public Use
  Company Number: JP-ELI_LILLY_AND_COMPANY-JP201005001951

PATIENT
  Sex: Male
  Weight: 77.6 kg

DRUGS (22)
  1. PEMETREXED [Suspect]
     Indication: LUNG ADENOCARCINOMA STAGE IV
     Dosage: 500 MG/M2, OTHER
     Route: 042
     Dates: start: 20091019, end: 20100412
  2. AVASTIN [Concomitant]
     Indication: LUNG ADENOCARCINOMA STAGE IV
     Dosage: 7.5 MG/M2, OTHER
     Route: 042
     Dates: start: 20091112, end: 20091224
  3. AVASTIN [Concomitant]
     Dosage: 15 MG/M2, OTHER
     Route: 042
     Dates: start: 20100118, end: 20100412
  4. CISPLATIN [Concomitant]
     Indication: LUNG ADENOCARCINOMA STAGE IV
     Dosage: 75 MG/M2, OTHER
     Route: 042
     Dates: start: 20091019, end: 20091225
  5. PANVITAN [Concomitant]
     Dosage: 1 G, DAILY (1/D)
     Route: 048
     Dates: start: 20091009
  6. CYANOCOBALAMIN [Concomitant]
     Dosage: 1 MG, UNK
     Route: 030
     Dates: start: 20091009, end: 20100323
  7. DEXART [Concomitant]
     Dosage: 4 MG, DAILY (1/D)
     Route: 042
     Dates: start: 20091019, end: 20091201
  8. DEXART [Concomitant]
     Dosage: 6.6 MG, DAILY (1/D)
     Route: 042
     Dates: start: 20100118, end: 20100412
  9. PREDONINE [Concomitant]
     Dosage: 30 MG, UNK
     Route: 048
     Dates: start: 20100118, end: 20100120
  10. GRANISETRON [Concomitant]
     Dosage: 3 MG, DAILY (1/D)
     Route: 042
     Dates: start: 20091019, end: 20091201
  11. MAGMITT [Concomitant]
     Indication: PROPHYLAXIS
     Dosage: 330 MG, DAILY (1/D)
     Route: 048
     Dates: start: 20091019
  12. PRIMPERAN /00041901/ [Concomitant]
     Indication: HICCUPS
     Dosage: 5 MG, DAILY (1/D)
     Route: 048
     Dates: start: 20091021, end: 20091021
  13. PRIMPERAN /00041901/ [Concomitant]
     Dosage: 5 MG, DAILY (1/D)
     Route: 048
     Dates: start: 20091227, end: 20091228
  14. LIORESAL [Concomitant]
     Indication: HICCUPS
     Dosage: 1 D/F, DAILY (1/D)
     Route: 048
     Dates: start: 20091021, end: 20091021
  15. GLYCYRRHIZA EXTRACT [Concomitant]
     Indication: ABDOMINAL DISCOMFORT
     Dates: start: 20091021, end: 20091022
  16. ISODINE [Concomitant]
     Indication: PROPHYLAXIS
     Dates: start: 20091208, end: 20100105
  17. CRAVIT [Concomitant]
     Indication: CONJUNCTIVITIS
     Dosage: UNK, UNK
     Route: 047
     Dates: start: 20091102, end: 20091102
  18. FLUMETHOLON [Concomitant]
     Indication: CONJUNCTIVITIS
     Route: 047
     Dates: start: 20091102, end: 20091102
  19. ALLOZYM [Concomitant]
     Indication: HYPERURICAEMIA
     Dosage: 100 MG, DAILY (1/D)
     Route: 048
  20. TENORMIN [Concomitant]
     Indication: HYPERTENSION
     Dosage: 25 MG, DAILY (1/D)
     Route: 048
  21. AMLODIN [Concomitant]
     Indication: HYPERTENSION
     Dosage: 2.5 MG, DAILY (1/D)
     Route: 048
  22. LIPOVAS /00848101/ [Concomitant]
     Indication: HYPERLIPIDAEMIA
     Dosage: 5 MG, DAILY (1/D)
     Route: 048

REACTIONS (1)
  - AORTIC DISSECTION [None]
